FAERS Safety Report 9900440 (Version 1)
Quarter: 2014Q1

REPORT INFORMATION
  Report Type: Spontaneous
  Country: FR (occurrence: FR)
  Receive Date: 20140217
  Receipt Date: 20140217
  Transmission Date: 20141002
  Serious: Yes (Hospitalization)
  Sender: FDA-Public Use
  Company Number: FR-ROCHE-1347299

PATIENT
  Age: 42 Year
  Sex: Male

DRUGS (1)
  1. ROCEPHINE [Suspect]
     Indication: LYME DISEASE
     Route: 042
     Dates: start: 20130724, end: 20130814

REACTIONS (3)
  - Pain [Recovered/Resolved]
  - Muscle rupture [Recovered/Resolved]
  - Tremor [Recovered/Resolved]
